FAERS Safety Report 9939098 (Version 1)
Quarter: 2014Q1

REPORT INFORMATION
  Report Type: Spontaneous
  Country: US (occurrence: US)
  Receive Date: 20140303
  Receipt Date: 20140303
  Transmission Date: 20141002
  Serious: No
  Sender: FDA-Public Use
  Company Number: US-ABBVIE-13P-163-1033989-00

PATIENT
  Age: 24 Year
  Sex: Male

DRUGS (3)
  1. HUMIRA [Suspect]
     Indication: CROHN^S DISEASE
     Dosage: FIRST 40MG DOSE OF 160MG LOADING DOSE
     Dates: start: 20130108
  2. ADVAIR [Concomitant]
     Indication: ASTHMA
     Route: 055
  3. LORATADINE [Concomitant]
     Indication: ASTHMA

REACTIONS (1)
  - Injection site pain [Recovered/Resolved]
